FAERS Safety Report 17302779 (Version 1)
Quarter: 2020Q1

REPORT INFORMATION
  Report Type: Spontaneous
  Country: US (occurrence: US)
  Receive Date: 20200122
  Receipt Date: 20200122
  Transmission Date: 20200409
  Serious: Yes (Life-Threatening, Other)
  Sender: FDA-Public Use
  Company Number: US-ENDO PHARMACEUTICALS INC-2019-109463

PATIENT
  Age: 38 Year
  Sex: Male

DRUGS (3)
  1. PERCOCET [Suspect]
     Active Substance: ACETAMINOPHEN\OXYCODONE HYDROCHLORIDE
     Indication: ARTHRALGIA
     Dosage: 5 MG, UNKNOWN
     Route: 065
     Dates: start: 2008
  2. PERCOCET [Suspect]
     Active Substance: ACETAMINOPHEN\OXYCODONE HYDROCHLORIDE
     Dosage: 1 DF, UNKNOWN (4 A DAY)
     Route: 065
     Dates: start: 2015, end: 2015
  3. PERCOCET [Suspect]
     Active Substance: ACETAMINOPHEN\OXYCODONE HYDROCHLORIDE
     Dosage: 1 DF, UNKNOWN (8 PILLS WITHIN 24 HOURS)
     Route: 065

REACTIONS (2)
  - Suicide attempt [Unknown]
  - Drug dependence [Unknown]

NARRATIVE: CASE EVENT DATE: 200905
